FAERS Safety Report 5226727-X (Version None)
Quarter: 2007Q1

REPORT INFORMATION
  Report Type: 
  Country: None (occurrence: None)
  Receive Date: 20070129
  Receipt Date: 20070122
  Transmission Date: 20070707
  Serious: Yes (Other)
  Sender: FDA-Public Use
  Company Number: SPVI-2007-00106

PATIENT
  Age: 37 Year
  Sex: Female
  Weight: 78.5 kg

DRUGS (6)
  1. DAYTRANA [Suspect]
     Indication: ATTENTION DEFICIT/HYPERACTIVITY DISORDER
     Dosage: SEE IMAGE
     Route: 062
     Dates: start: 20061208, end: 20070104
  2. TOPAMAX [Concomitant]
  3. ZEGERID [Concomitant]
  4. ZANTAC [Concomitant]
  5. CYCLOBENZAPRINE HCL [Concomitant]
  6. CARDIZEM [Concomitant]

REACTIONS (2)
  - BLOOD PRESSURE INCREASED [None]
  - TACHYCARDIA [None]
